FAERS Safety Report 4728167-6 (Version None)
Quarter: 2005Q3

REPORT INFORMATION
  Report Type: 
  Country: None (occurrence: None)
  Receive Date: 20050728
  Receipt Date: 20050728
  Transmission Date: 20060218
  Serious: Yes (Hospitalization, Other)
  Sender: FDA-Public Use
  Company Number: None

PATIENT
  Sex: Female
  Weight: 110.7 kg

DRUGS (4)
  1. BLEOMYCIN [Suspect]
     Indication: HODGKIN'S DISEASE
     Dates: start: 20050708
  2. DACARBAZINE [Suspect]
     Dates: start: 20050708
  3. DOXORUBICIN HYDROCHLORIDE [Suspect]
     Dates: start: 20050708
  4. VINBLASTINE SULFATE [Suspect]
     Dates: start: 20050708

REACTIONS (2)
  - DYSPNOEA [None]
  - HYPOXIA [None]
